FAERS Safety Report 25047620 (Version 1)
Quarter: 2025Q1

REPORT INFORMATION
  Report Type: Spontaneous
  Country: CA (occurrence: CA)
  Receive Date: 20250306
  Receipt Date: 20250306
  Transmission Date: 20250408
  Serious: Yes (Life-Threatening, Other)
  Sender: MYLAN
  Company Number: CA-MYLANLABS-2025M1019235

PATIENT
  Age: 59 Year
  Sex: Male

DRUGS (44)
  1. VERAPAMIL [Suspect]
     Active Substance: VERAPAMIL HYDROCHLORIDE
     Indication: Product used for unknown indication
  2. VERAPAMIL [Suspect]
     Active Substance: VERAPAMIL HYDROCHLORIDE
     Route: 065
  3. VERAPAMIL [Suspect]
     Active Substance: VERAPAMIL HYDROCHLORIDE
     Route: 065
  4. VERAPAMIL [Suspect]
     Active Substance: VERAPAMIL HYDROCHLORIDE
  5. ASPIRIN [Suspect]
     Active Substance: ASPIRIN
     Indication: Product used for unknown indication
  6. ASPIRIN [Suspect]
     Active Substance: ASPIRIN
     Route: 065
  7. ASPIRIN [Suspect]
     Active Substance: ASPIRIN
     Route: 065
  8. ASPIRIN [Suspect]
     Active Substance: ASPIRIN
  9. COLACE [Suspect]
     Active Substance: DOCUSATE SODIUM
     Indication: Product used for unknown indication
  10. COLACE [Suspect]
     Active Substance: DOCUSATE SODIUM
     Route: 065
  11. COLACE [Suspect]
     Active Substance: DOCUSATE SODIUM
     Route: 065
  12. COLACE [Suspect]
     Active Substance: DOCUSATE SODIUM
  13. DEXAMETHASONE [Suspect]
     Active Substance: DEXAMETHASONE
     Indication: Product used for unknown indication
  14. DEXAMETHASONE [Suspect]
     Active Substance: DEXAMETHASONE
     Route: 065
  15. DEXAMETHASONE [Suspect]
     Active Substance: DEXAMETHASONE
     Route: 065
  16. DEXAMETHASONE [Suspect]
     Active Substance: DEXAMETHASONE
  17. ETOPOSIDE [Suspect]
     Active Substance: ETOPOSIDE
     Indication: Non-small cell lung cancer
     Dosage: 180 MILLIGRAM, QD (1 EVERY 1 DAYS)
  18. ETOPOSIDE [Suspect]
     Active Substance: ETOPOSIDE
     Dosage: 180 MILLIGRAM, QD (1 EVERY 1 DAYS)
     Route: 065
  19. ETOPOSIDE [Suspect]
     Active Substance: ETOPOSIDE
     Dosage: 180 MILLIGRAM, QD (1 EVERY 1 DAYS)
     Route: 065
  20. ETOPOSIDE [Suspect]
     Active Substance: ETOPOSIDE
     Dosage: 180 MILLIGRAM, QD (1 EVERY 1 DAYS)
  21. GRANISETRON HYDROCHLORIDE [Suspect]
     Active Substance: GRANISETRON HYDROCHLORIDE
     Indication: Product used for unknown indication
  22. GRANISETRON HYDROCHLORIDE [Suspect]
     Active Substance: GRANISETRON HYDROCHLORIDE
     Route: 065
  23. GRANISETRON HYDROCHLORIDE [Suspect]
     Active Substance: GRANISETRON HYDROCHLORIDE
     Route: 065
  24. GRANISETRON HYDROCHLORIDE [Suspect]
     Active Substance: GRANISETRON HYDROCHLORIDE
  25. GRAVOL [Suspect]
     Active Substance: DIMENHYDRINATE
     Indication: Product used for unknown indication
  26. GRAVOL [Suspect]
     Active Substance: DIMENHYDRINATE
     Route: 065
  27. GRAVOL [Suspect]
     Active Substance: DIMENHYDRINATE
     Route: 065
  28. GRAVOL [Suspect]
     Active Substance: DIMENHYDRINATE
  29. FOSAPREPITANT DIMEGLUMINE [Suspect]
     Active Substance: FOSAPREPITANT DIMEGLUMINE
     Indication: Product used for unknown indication
  30. FOSAPREPITANT DIMEGLUMINE [Suspect]
     Active Substance: FOSAPREPITANT DIMEGLUMINE
     Route: 065
  31. FOSAPREPITANT DIMEGLUMINE [Suspect]
     Active Substance: FOSAPREPITANT DIMEGLUMINE
     Route: 065
  32. FOSAPREPITANT DIMEGLUMINE [Suspect]
     Active Substance: FOSAPREPITANT DIMEGLUMINE
  33. OXAZEPAM [Suspect]
     Active Substance: OXAZEPAM
     Indication: Product used for unknown indication
  34. OXAZEPAM [Suspect]
     Active Substance: OXAZEPAM
     Route: 065
  35. OXAZEPAM [Suspect]
     Active Substance: OXAZEPAM
     Route: 065
  36. OXAZEPAM [Suspect]
     Active Substance: OXAZEPAM
  37. ROSUVASTATIN CALCIUM [Suspect]
     Active Substance: ROSUVASTATIN CALCIUM
     Indication: Product used for unknown indication
  38. ROSUVASTATIN CALCIUM [Suspect]
     Active Substance: ROSUVASTATIN CALCIUM
     Route: 048
  39. ROSUVASTATIN CALCIUM [Suspect]
     Active Substance: ROSUVASTATIN CALCIUM
     Route: 048
  40. ROSUVASTATIN CALCIUM [Suspect]
     Active Substance: ROSUVASTATIN CALCIUM
  41. ZOPICLONE [Suspect]
     Active Substance: ZOPICLONE
     Indication: Product used for unknown indication
  42. ZOPICLONE [Suspect]
     Active Substance: ZOPICLONE
     Route: 065
  43. ZOPICLONE [Suspect]
     Active Substance: ZOPICLONE
     Route: 065
  44. ZOPICLONE [Suspect]
     Active Substance: ZOPICLONE

REACTIONS (3)
  - Anaphylactic reaction [Unknown]
  - Rash [Unknown]
  - Product use in unapproved indication [Unknown]
